FAERS Safety Report 13455189 (Version 5)
Quarter: 2017Q3

REPORT INFORMATION
  Report Type: Spontaneous
  Country: US (occurrence: US)
  Receive Date: 20170418
  Receipt Date: 20170816
  Transmission Date: 20171127
  Serious: Yes (Hospitalization, Other)
  Sender: FDA-Public Use
  Company Number: US-BAUSCH-BL-2017-010022

PATIENT
  Age: 61 Year
  Sex: Male
  Weight: 90.8 kg

DRUGS (10)
  1. PROPRANOLOL [Concomitant]
     Active Substance: PROPRANOLOL HYDROCHLORIDE
     Indication: PRODUCT USED FOR UNKNOWN INDICATION
  2. INDERAL [Concomitant]
     Active Substance: PROPRANOLOL HYDROCHLORIDE
     Indication: PRODUCT USED FOR UNKNOWN INDICATION
  3. XIFAXAN [Suspect]
     Active Substance: RIFAXIMIN
     Indication: HEPATIC FAILURE
     Route: 048
     Dates: start: 2014, end: 201612
  4. NEOMYCIN [Suspect]
     Active Substance: NEOMYCIN
     Indication: AMMONIA INCREASED
     Route: 065
     Dates: start: 2017
  5. LACTULOSE. [Concomitant]
     Active Substance: LACTULOSE
     Indication: PRODUCT USED FOR UNKNOWN INDICATION
  6. PROTONIX [Concomitant]
     Active Substance: PANTOPRAZOLE SODIUM
     Indication: PRODUCT USED FOR UNKNOWN INDICATION
  7. ALDACTONE [Concomitant]
     Active Substance: SPIRONOLACTONE
     Indication: PRODUCT USED FOR UNKNOWN INDICATION
  8. FUROSEMIDE. [Concomitant]
     Active Substance: FUROSEMIDE
     Indication: PRODUCT USED FOR UNKNOWN INDICATION
  9. XIFAXAN [Suspect]
     Active Substance: RIFAXIMIN
     Indication: HEPATIC CIRRHOSIS
     Route: 048
     Dates: start: 2017, end: 2017
  10. XIFAXAN [Suspect]
     Active Substance: RIFAXIMIN
     Indication: HEPATIC ENCEPHALOPATHY

REACTIONS (9)
  - Drug ineffective [Unknown]
  - Disorientation [Recovered/Resolved]
  - Ammonia increased [Not Recovered/Not Resolved]
  - Haemorrhage [Unknown]
  - Nausea [Recovered/Resolved]
  - Treatment noncompliance [Unknown]
  - Hospitalisation [Recovered/Resolved]
  - Rectal haemorrhage [Recovered/Resolved]
  - Hepatic cancer [Unknown]

NARRATIVE: CASE EVENT DATE: 2016
